FAERS Safety Report 5289615-9 (Version None)
Quarter: 2007Q1

REPORT INFORMATION
  Report Type: 
  Country: None (occurrence: None)
  Receive Date: 20070116
  Receipt Date: 20051220
  Transmission Date: 20070707
  Serious: Yes (Other)
  Sender: FDA-Public Use
  Company Number: HQWYE214403JUN05

PATIENT
  Age: 74 Year
  Sex: Female
  Weight: 72.64 kg

DRUGS (5)
  1. PREMPRO [Suspect]
     Indication: MENOPAUSAL SYMPTOMS
  2. CYCRIN [Suspect]
  3. PREMARIN [Suspect]
     Indication: MENOPAUSAL SYMPTOMS
  4. PROVERA [Suspect]
     Indication: MENOPAUSAL SYMPTOMS
  5. .. [Concomitant]
     Indication: MENOPAUSAL SYMPTOMS

REACTIONS (1)
  - BREAST CANCER [None]
